FAERS Safety Report 12788920 (Version 1)
Quarter: 2016Q3

REPORT INFORMATION
  Report Type: Report from Study
  Country: CO (occurrence: CO)
  Receive Date: 20160928
  Receipt Date: 20160928
  Transmission Date: 20161109
  Serious: Yes (Other)
  Sender: FDA-Public Use
  Company Number: CO-INCYTE CORPORATION-2015IN004650

PATIENT
  Age: 51 Year
  Sex: Female
  Weight: 47 kg

DRUGS (3)
  1. JAKAFI [Suspect]
     Active Substance: RUXOLITINIB
     Indication: MYELOFIBROSIS
     Dosage: 20 MG, Q12H, ALSO REPORTED AS TWICE A DAY
     Route: 048
     Dates: start: 20130115
  2. JAKAFI [Suspect]
     Active Substance: RUXOLITINIB
     Indication: THROMBOCYTOSIS
  3. JAKAFI [Suspect]
     Active Substance: RUXOLITINIB
     Indication: POLYCYTHAEMIA VERA

REACTIONS (15)
  - Fall [Unknown]
  - Malaise [Unknown]
  - White blood cell count increased [Unknown]
  - Burning sensation [Unknown]
  - Product use issue [Unknown]
  - Depressed mood [Unknown]
  - Platelet count increased [Unknown]
  - Contusion [Unknown]
  - Joint injury [Unknown]
  - Head injury [Unknown]
  - Feeling drunk [Unknown]
  - Pyrexia [Unknown]
  - Haematoma [Unknown]
  - Blood potassium increased [Unknown]
  - Dizziness [Unknown]

NARRATIVE: CASE EVENT DATE: 20151018
